FAERS Safety Report 5701712-X (Version None)
Quarter: 2008Q2

REPORT INFORMATION
  Report Type: 
  Country: None (occurrence: None)
  Receive Date: 20080408
  Receipt Date: 20080331
  Transmission Date: 20081010
  Serious: Yes (Other)
  Sender: FDA-Public Use
  Company Number: 2008SP005278

PATIENT
  Age: 54 Year
  Sex: Female

DRUGS (6)
  1. TEMODAR [Suspect]
     Indication: OLIGODENDROGLIOMA
     Dosage: 300 MG; PO
     Route: 048
     Dates: end: 20080201
  2. TEMODAR [Suspect]
     Indication: OLIGODENDROGLIOMA
     Dosage: 300 MG; PO
     Route: 048
     Dates: start: 20050101
  3. ANZEMET [Concomitant]
  4. KEPPRA [Concomitant]
  5. CRESTOR [Concomitant]
  6. JENUVA [Concomitant]

REACTIONS (4)
  - NAUSEA [None]
  - PHARMACEUTICAL PRODUCT COMPLAINT [None]
  - VOMITING [None]
  - WEIGHT DECREASED [None]
